FAERS Safety Report 8835735 (Version 2)
Quarter: 2012Q4

REPORT INFORMATION
  Report Type: 
  Country: US (occurrence: US)
  Receive Date: 20121011
  Receipt Date: 20121025
  Transmission Date: 20130627
  Serious: Yes (Hospitalization, Other)
  Sender: FDA-Public Use
  Company Number: PHEH2012US019673

PATIENT
  Age: 53 Year
  Sex: Female

DRUGS (1)
  1. SANDOSTATIN LAR DEPOT [Suspect]
     Dosage: 40 mg, monthly
     Route: 030

REACTIONS (17)
  - Pericardial effusion [Unknown]
  - Early satiety [Unknown]
  - Pyrexia [Unknown]
  - Abdominal distension [Unknown]
  - Nodule [Unknown]
  - Renal cyst infection [Recovered/Resolved]
  - Congenital cystic kidney disease [Unknown]
  - Renal pain [Unknown]
  - Umbilical hernia [Unknown]
  - Polycystic liver disease [Unknown]
  - Blood pressure decreased [Unknown]
  - Haemorrhage [Unknown]
  - Hepatomegaly [Unknown]
  - Vasodilatation [Unknown]
  - Increased tendency to bruise [Unknown]
  - Malaise [Unknown]
  - Pruritus [Unknown]
